FAERS Safety Report 12941223 (Version 1)
Quarter: 2016Q4

REPORT INFORMATION
  Report Type: Spontaneous
  Country: DE (occurrence: DE)
  Receive Date: 20161114
  Receipt Date: 20161114
  Transmission Date: 20170207
  Serious: Yes (Death)
  Sender: FDA-Public Use
  Company Number: DE-ALLERGAN-1641265

PATIENT
  Age: 43 Year
  Sex: Male

DRUGS (1)
  1. SUCRALFATE - BP [Suspect]
     Active Substance: SUCRALFATE
     Indication: PRODUCT USED FOR UNKNOWN INDICATION
     Dosage: 20 ML, SINGLE
     Route: 042

REACTIONS (2)
  - Incorrect route of drug administration [Fatal]
  - Blood aluminium increased [Fatal]
